FAERS Safety Report 4900440-8 (Version None)
Quarter: 2006Q1

REPORT INFORMATION
  Report Type: 
  Country: None (occurrence: None)
  Receive Date: 20060203
  Receipt Date: 20051130
  Transmission Date: 20060701
  Serious: Yes (Hospitalization)
  Sender: FDA-Public Use
  Company Number: HQWYE792001DEC05

PATIENT
  Sex: Female
  Weight: 59 kg

DRUGS (10)
  1. ENBREL [Suspect]
     Indication: RHEUMATOID ARTHRITIS
     Route: 058
     Dates: start: 20050627, end: 20051129
  2. METHOTREXATE [Suspect]
     Indication: RHEUMATOID ARTHRITIS
     Route: 048
     Dates: start: 20050627, end: 20051129
  3. NAPROXEN [Concomitant]
     Dates: start: 20050101, end: 20051208
  4. EXACYL [Concomitant]
     Dates: start: 19800101
  5. ELTHYRONE [Concomitant]
     Dates: start: 20050101
  6. BISOPROLOL [Concomitant]
     Dates: start: 20041201
  7. HYDROCHLOROTHIAZIDE [Concomitant]
     Dates: start: 20041201
  8. FOSAMAX [Concomitant]
     Dates: start: 20050101
  9. CALCIUM GLUCONATE [Concomitant]
     Dates: start: 19990101
  10. ZYRTEC [Concomitant]
     Dates: start: 20050822

REACTIONS (2)
  - CONJUNCTIVITIS [None]
  - PNEUMONITIS [None]
